FAERS Safety Report 14373530 (Version 4)
Quarter: 2018Q1

REPORT INFORMATION
  Report Type: Report from Study
  Country: None (occurrence: DE)
  Receive Date: 20180110
  Receipt Date: 20180214
  Transmission Date: 20180509
  Serious: Yes (Death, Life-Threatening, Hospitalization)
  Sender: FDA-Public Use
  Company Number: DE-ABBVIE-17P-062-2205604-00

PATIENT
  Age: 78 Year
  Sex: Male
  Weight: 101 kg

DRUGS (17)
  1. AZACITIDINE. [Suspect]
     Active Substance: AZACITIDINE
     Indication: ACUTE MYELOID LEUKAEMIA
     Dosage: DAYS 1-7 OF EACH 28-DAY CYCLE
     Route: 042
     Dates: start: 20171107, end: 20171210
  2. METOPROLOL. [Concomitant]
     Active Substance: METOPROLOL
     Indication: HYPERTENSION
     Route: 048
     Dates: start: 2017, end: 20171225
  3. SPIROLACTON [Concomitant]
     Indication: OEDEMA PERIPHERAL
     Route: 048
     Dates: start: 2017, end: 20171225
  4. MAGNESIUMHYDROGEN [Concomitant]
     Route: 042
     Dates: start: 20171106, end: 20171114
  5. KALIUMCHLORID [Concomitant]
     Route: 048
     Dates: start: 20171230, end: 20171230
  6. FEBUXOSTAT. [Concomitant]
     Active Substance: FEBUXOSTAT
     Indication: PROPHYLAXIS
     Route: 048
     Dates: start: 2017, end: 20171114
  7. VENETOCLAX. [Suspect]
     Active Substance: VENETOCLAX
     Indication: ACUTE MYELOID LEUKAEMIA
     Route: 048
     Dates: start: 20171107, end: 20171107
  8. VENETOCLAX. [Suspect]
     Active Substance: VENETOCLAX
     Route: 048
     Dates: start: 20171204, end: 20171221
  9. TAMULOSIN [Concomitant]
     Active Substance: TAMSULOSIN
     Indication: BENIGN PROSTATIC HYPERPLASIA
     Route: 048
     Dates: start: 2017, end: 20171225
  10. ADENURIC [Concomitant]
     Active Substance: FEBUXOSTAT
     Indication: PROPHYLAXIS
     Route: 048
     Dates: start: 20171115, end: 20171230
  11. VENETOCLAX. [Suspect]
     Active Substance: VENETOCLAX
     Route: 048
     Dates: start: 20171109, end: 20171127
  12. KALIUM HYDROGEN PHOSPHATE [Concomitant]
     Indication: HYPOPHOSPHATAEMIA
     Route: 048
     Dates: start: 20171128
  13. ADENURIC [Concomitant]
     Active Substance: FEBUXOSTAT
     Indication: PROPHYLAXIS
     Route: 048
     Dates: start: 2017, end: 20171230
  14. PANTOPRAZOL [Concomitant]
     Active Substance: PANTOPRAZOLE SODIUM
     Indication: GASTROOESOPHAGEAL REFLUX PROPHYLAXIS
     Route: 048
     Dates: start: 2017, end: 20171230
  15. VENETOCLAX. [Suspect]
     Active Substance: VENETOCLAX
     Route: 048
     Dates: start: 20171108, end: 20171108
  16. KALIUMCHLORID [Concomitant]
     Indication: ATRIAL FIBRILLATION
     Route: 048
     Dates: start: 20171229, end: 20171229
  17. MAGNESIUMHYDROGEN [Concomitant]
     Indication: PROPHYLAXIS
     Route: 048
     Dates: start: 2017

REACTIONS (2)
  - Febrile neutropenia [Recovered/Resolved]
  - Candida sepsis [Fatal]

NARRATIVE: CASE EVENT DATE: 20171224
